FAERS Safety Report 6874136-X (Version None)
Quarter: 2010Q3

REPORT INFORMATION
  Report Type: 
  Country: None (occurrence: None)
  Receive Date: 20100723
  Receipt Date: 20090604
  Transmission Date: 20110219
  Serious: No
  Sender: FDA-Public Use
  Company Number: US-PFIZER INC-2009202709

PATIENT
  Sex: Female
  Weight: 58.059 kg

DRUGS (2)
  1. CHANTIX [Suspect]
     Indication: SMOKING CESSATION THERAPY
     Dosage: 1 MG, 2X/DAY
     Route: 048
     Dates: start: 20090201, end: 20090416
  2. LEXAPRO [Concomitant]
     Dosage: UNK

REACTIONS (1)
  - PITYRIASIS [None]
